FAERS Safety Report 5725698-7 (Version None)
Quarter: 2008Q2

REPORT INFORMATION
  Report Type: 
  Country: None (occurrence: None)
  Receive Date: 20080429
  Receipt Date: 20080416
  Transmission Date: 20081010
  Serious: No
  Sender: FDA-Public Use
  Company Number: 02100-JPN-07-0764

PATIENT
  Age: 60 Year
  Sex: Female

DRUGS (10)
  1. PLETAL [Suspect]
     Indication: ARTERIOSCLEROSIS OBLITERANS
     Dosage: 50 MG, BID ORAL
     Route: 048
     Dates: start: 20060901, end: 20061129
  2. DORNER (BERAPROST SODIUM) TABLET [Suspect]
     Dosage: ORAL
     Route: 048
     Dates: end: 20061129
  3. PRORENAL (LIMAPROST ALFADEX) TABLET [Suspect]
     Dosage: 5 UG;TID;ORAL
     Route: 048
     Dates: end: 20061129
  4. ANPLAG (SARPOGRELATE HYDROCHLORIDE) [Concomitant]
  5. JUVELA NICOTINATE (TOCOPHERYL NICOTINATE) CAPSULE [Concomitant]
  6. NORVASC [Concomitant]
  7. ACECOL (TEMOCAPRIL HYDROCHLORIDE) TABLET [Concomitant]
  8. PHOSBLOCK (SEVELAMER HYDROCHLORIDE) TABLET [Concomitant]
  9. SIGMART (NICORANDIL) [Concomitant]
  10. CARVEDILOL [Concomitant]

REACTIONS (1)
  - CARDIAC FAILURE [None]
